FAERS Safety Report 7220086-9 (Version None)
Quarter: 2011Q1

REPORT INFORMATION
  Report Type: 
  Country: None (occurrence: None)
  Receive Date: 20110111
  Receipt Date: 20110104
  Transmission Date: 20110831
  Serious: Yes (Other)
  Sender: FDA-Public Use
  Company Number: A0904404A

PATIENT

DRUGS (3)
  1. WELLBUTRIN [Suspect]
     Route: 048
  2. TIKOSYN [Suspect]
     Route: 065
  3. LEXAPRO [Suspect]
     Route: 065

REACTIONS (3)
  - SUICIDAL IDEATION [None]
  - DEPRESSION [None]
  - DRUG INTERACTION [None]
